FAERS Safety Report 8515510-5 (Version None)
Quarter: 2012Q3

REPORT INFORMATION
  Report Type: 
  Country: None (occurrence: None)
  Receive Date: 20120705
  Receipt Date: 20120622
  Transmission Date: 20120928
  Serious: Yes (Hospitalization)
  Sender: FDA-Public Use
  Company Number: 2012HGS-003773

PATIENT
  Sex: Female
  Weight: 55 kg

DRUGS (5)
  1. PREDNISOLON (PREDNISOLONE)(PREDNISOLONE) [Concomitant]
  2. QUENSYL (HYDROXYCHLOROQUINE SULFATE)(HYDROXYCHLOROQUINE SULFATE) [Concomitant]
  3. FOLSAN (FOLIC ACID)(FOLIC ACID) [Concomitant]
  4. BENLYSTA [Suspect]
     Indication: SYSTEMIC LUPUS ERYTHEMATOSUS
     Dosage: INTRAVENOUS DRIP
     Route: 041
     Dates: start: 20120229, end: 20120614
  5. METHOTREXATE [Concomitant]

REACTIONS (5)
  - DYSPNOEA [None]
  - VISION BLURRED [None]
  - CHILLS [None]
  - DIPLOPIA [None]
  - NAUSEA [None]
